FAERS Safety Report 4969294-8 (Version None)
Quarter: 2006Q2

REPORT INFORMATION
  Report Type: 
  Country: None (occurrence: None)
  Receive Date: 20060405
  Receipt Date: 20060327
  Transmission Date: 20061013
  Serious: Yes (Other)
  Sender: FDA-Public Use
  Company Number: 2006-03-1929

PATIENT
  Age: 50 Year
  Sex: Female

DRUGS (3)
  1. NASONEX [Suspect]
     Dosage: 2SPRAYS/N QD NASAL SPRAY
  2. NASAREL (FLUNISOLIDE) [Concomitant]
  3. ZOCOR [Concomitant]

REACTIONS (3)
  - ANAPHYLACTIC SHOCK [None]
  - NASAL DISCOMFORT [None]
  - THROAT TIGHTNESS [None]
